FAERS Safety Report 23848950 (Version 1)
Quarter: 2024Q2

REPORT INFORMATION
  Report Type: Spontaneous
  Country: NL (occurrence: NL)
  Receive Date: 20240513
  Receipt Date: 20240513
  Transmission Date: 20240715
  Serious: Yes (Other)
  Sender: FDA-Public Use
  Company Number: None

PATIENT
  Age: 49 Year
  Sex: Female

DRUGS (1)
  1. PRALUENT [Suspect]
     Active Substance: ALIROCUMAB
     Indication: Hypercholesterolaemia
     Dosage: 75 MG/ML, QOW
     Route: 065
     Dates: start: 20200101, end: 20230601

REACTIONS (6)
  - Suicidal ideation [Recovering/Resolving]
  - Fatigue [Recovered/Resolved]
  - Muscle spasms [Recovering/Resolving]
  - Depressed mood [Recovering/Resolving]
  - Hyperaesthesia [Recovering/Resolving]
  - Back pain [Recovering/Resolving]
